FAERS Safety Report 9859859 (Version 2)
Quarter: 2014Q1

REPORT INFORMATION
  Report Type: Spontaneous
  Country: IT (occurrence: IT)
  Receive Date: 20140131
  Receipt Date: 20140206
  Transmission Date: 20141002
  Serious: Yes (Hospitalization)
  Sender: FDA-Public Use
  Company Number: PHHY2014IT009702

PATIENT
  Sex: Female

DRUGS (4)
  1. TICLOPIDINE [Suspect]
     Indication: PROPHYLAXIS
     Dosage: 1 DF, UNK
     Dates: start: 20100101, end: 20131105
  2. RYTMONORM [Concomitant]
     Dosage: 2 DF, UNK
     Route: 048
  3. HIZAAR [Concomitant]
     Indication: HYPERTENSION
     Dosage: 0.5 DF
     Route: 048
  4. SIMVASTATIN [Concomitant]
     Indication: HYPERCHOLESTEROLAEMIA
     Dosage: 20 MG, UNK
     Route: 048

REACTIONS (2)
  - Periorbital haematoma [Recovering/Resolving]
  - Subdural haemorrhage [Recovering/Resolving]
